FAERS Safety Report 13564491 (Version 9)
Quarter: 2024Q4

REPORT INFORMATION
  Report Type: Spontaneous
  Country: CA (occurrence: CA)
  Receive Date: 20170519
  Receipt Date: 20241128
  Transmission Date: 20250114
  Serious: Yes (Death, Hospitalization, Other)
  Sender: BRISTOL-MYERS SQUIBB COMPANY
  Company Number: CA-BRISTOL-MYERS SQUIBB COMPANY-BMS-2017-043740

PATIENT
  Age: 35 Year
  Sex: Male

DRUGS (24)
  1. NIVOLUMAB [Suspect]
     Active Substance: NIVOLUMAB
     Indication: Hodgkin^s disease
     Dosage: 3 MG/KG, Q2WK, CYCLICAL
     Route: 042
     Dates: start: 201508
  2. CISPLATIN [Suspect]
     Active Substance: CISPLATIN
     Indication: Hodgkin^s disease
     Dosage: CYCLICAL
  3. ETOPOSIDE [Suspect]
     Active Substance: ETOPOSIDE
     Indication: Hodgkin^s disease
     Dates: start: 2010
  4. ETOPOSIDE [Suspect]
     Active Substance: ETOPOSIDE
     Dosage: UNK
     Route: 042
     Dates: start: 2014
  5. CARMUSTINE [Suspect]
     Active Substance: CARMUSTINE
     Indication: Hodgkin^s disease
     Dosage: CYCLICAL
  6. AZACITIDINE [Concomitant]
     Active Substance: AZACITIDINE
     Indication: Hodgkin^s disease
     Dosage: 75 MG/M2, UNK
     Route: 058
  7. GEMCITABINE [Concomitant]
     Active Substance: GEMCITABINE
     Indication: Hodgkin^s disease
     Dosage: CYCLICAL
  8. BLEOMYCIN SULFATE [Concomitant]
     Active Substance: BLEOMYCIN SULFATE
     Indication: Hodgkin^s disease
     Dosage: CYCLICAL
  9. ADRIAMYCIN [Concomitant]
     Active Substance: DOXORUBICIN HYDROCHLORIDE
     Indication: Hodgkin^s disease
     Dosage: CYCLICAL
  10. DACARBAZINE [Concomitant]
     Active Substance: DACARBAZINE
     Indication: Hodgkin^s disease
     Dosage: CYCLICAL
  11. CHLORAMBUCIL [Concomitant]
     Active Substance: CHLORAMBUCIL
     Indication: Hodgkin^s disease
     Dosage: CYCLICAL
  12. DEXAMETHASONE [Concomitant]
     Active Substance: DEXAMETHASONE
     Indication: Hodgkin^s disease
     Dosage: CYCLICAL
  13. CYCLOPHOSPHAMIDE [Concomitant]
     Active Substance: CYCLOPHOSPHAMIDE
     Indication: Hodgkin^s disease recurrent
     Dosage: CYCLICAL
     Route: 042
  14. VINCRISTINE SULFATE [Concomitant]
     Active Substance: VINCRISTINE SULFATE
     Indication: Hodgkin^s disease
     Dosage: CYCLICAL
  15. VINBLASTINE [Concomitant]
     Active Substance: VINBLASTINE
     Indication: Hodgkin^s disease
     Dosage: CYCLICAL
  16. PROCARBAZINE [Concomitant]
     Active Substance: PROCARBAZINE
     Indication: Hodgkin^s disease
     Dosage: CYCLICAL
     Dates: start: 201210
  17. PROCARBAZINE [Concomitant]
     Active Substance: PROCARBAZINE
     Dosage: CYCLICAL
     Dates: start: 2014
  18. CYTARABINE [Concomitant]
     Active Substance: CYTARABINE
     Indication: Hodgkin^s disease
     Dosage: UNK
  19. PREDNISOLONE [Concomitant]
     Active Substance: PREDNISOLONE
     Indication: Hodgkin^s disease
     Dosage: CYCLICAL
  20. MELPHALAN [Concomitant]
     Active Substance: MELPHALAN
     Indication: Hodgkin^s disease
     Dosage: UNK
  21. CYCLOPHOSPHAMIDE [Concomitant]
     Active Substance: CYCLOPHOSPHAMIDE
     Indication: Hodgkin^s disease
     Dosage: CYCLICAL
     Route: 042
     Dates: start: 2014
  22. PREDNISONE [Concomitant]
     Active Substance: PREDNISONE
     Indication: Hodgkin^s disease
     Dosage: CYCLICAL
     Dates: start: 2014
  23. BENDAMUSTINE [Concomitant]
     Active Substance: BENDAMUSTINE
     Indication: Hodgkin^s disease
     Dosage: CYCLICAL
     Dates: start: 2014
  24. ADCETRIS [Concomitant]
     Active Substance: BRENTUXIMAB VEDOTIN
     Dosage: CYCLICAL
     Dates: start: 2014

REACTIONS (4)
  - Autoimmune myositis [Fatal]
  - Malignant neoplasm progression [Fatal]
  - Acute myeloid leukaemia [Fatal]
  - Off label use [Unknown]
